FAERS Safety Report 21929055 (Version 1)
Quarter: 2023Q1

REPORT INFORMATION
  Report Type: Spontaneous
  Country: JP (occurrence: JP)
  Receive Date: 20230131
  Receipt Date: 20230131
  Transmission Date: 20230417
  Serious: Yes (Hospitalization)
  Sender: FDA-Public Use
  Company Number: JP-JNJFOC-20221030414

PATIENT
  Age: 80 Year
  Sex: Female
  Weight: 49.4 kg

DRUGS (9)
  1. UPTRAVI [Suspect]
     Active Substance: SELEXIPAG
     Indication: Pulmonary hypertension
     Route: 048
     Dates: start: 202203, end: 2022
  2. UPTRAVI [Suspect]
     Active Substance: SELEXIPAG
     Route: 048
     Dates: start: 2022
  3. UPTRAVI [Suspect]
     Active Substance: SELEXIPAG
     Route: 048
     Dates: start: 20220420, end: 2022
  4. UPTRAVI [Suspect]
     Active Substance: SELEXIPAG
     Route: 048
     Dates: start: 2022
  5. AMBRISENTAN [Suspect]
     Active Substance: AMBRISENTAN
     Indication: Pulmonary hypertension
     Route: 048
     Dates: start: 201708, end: 202202
  6. AMBRISENTAN [Suspect]
     Active Substance: AMBRISENTAN
     Route: 048
     Dates: start: 202202, end: 202203
  7. AMBRISENTAN [Suspect]
     Active Substance: AMBRISENTAN
     Route: 048
     Dates: start: 202203, end: 20230117
  8. ADCIRCA [Concomitant]
     Active Substance: TADALAFIL
     Indication: Pulmonary hypertension
     Route: 048
     Dates: start: 201709, end: 202201
  9. ADCIRCA [Concomitant]
     Active Substance: TADALAFIL
     Route: 048
     Dates: start: 202201

REACTIONS (16)
  - Right ventricular failure [Not Recovered/Not Resolved]
  - Oedema [Not Recovered/Not Resolved]
  - Dyspnoea exertional [Unknown]
  - Pulmonary arterial pressure abnormal [Unknown]
  - Brain natriuretic peptide increased [Recovering/Resolving]
  - Respiratory symptom [Unknown]
  - Oedema peripheral [Unknown]
  - Peripheral swelling [Unknown]
  - Raynaud^s phenomenon [Unknown]
  - Nausea [Unknown]
  - Vomiting [Unknown]
  - Regurgitation [Unknown]
  - Gastrointestinal hypomotility [Unknown]
  - Gastrooesophageal reflux disease [Unknown]
  - Right ventricular enlargement [Unknown]
  - Right ventricular systolic pressure decreased [Unknown]

NARRATIVE: CASE EVENT DATE: 20220101
